FAERS Safety Report 9760468 (Version 2)
Quarter: 2014Q2

REPORT INFORMATION
  Report Type: Spontaneous
  Country: US (occurrence: US)
  Receive Date: 20131216
  Receipt Date: 20140418
  Transmission Date: 20141212
  Serious: Yes (Death, Other)
  Sender: FDA-Public Use
  Company Number: US-BRISTOL-MYERS SQUIBB COMPANY-19885235

PATIENT
  Age: 19 Year
  Sex: Female

DRUGS (4)
  1. ABILIFY [Suspect]
     Indication: DEPRESSION
     Dosage: 1/2 TAB.?12FEB2013: 1MG.?14FEB2013: 2MG.?26FEB2013: 5MG.?04MAR2013: 5MG 1/2 TAB
     Route: 048
     Dates: start: 20130212
  2. LEXAPRO [Suspect]
     Indication: DEPRESSION
     Dates: start: 20120904, end: 20130404
  3. TOPAMAX [Concomitant]
     Indication: MIGRAINE
  4. RISPERIDAL [Concomitant]
     Dates: start: 20121217, end: 20130212

REACTIONS (6)
  - Completed suicide [Fatal]
  - Mania [Unknown]
  - Depression [Unknown]
  - Diplopia [Unknown]
  - Insomnia [Unknown]
  - Disturbance in attention [Unknown]
